FAERS Safety Report 25041566 (Version 1)
Quarter: 2025Q1

REPORT INFORMATION
  Report Type: Spontaneous
  Country: SE (occurrence: SE)
  Receive Date: 20250305
  Receipt Date: 20250305
  Transmission Date: 20250409
  Serious: Yes (Death)
  Sender: MERCK SHARP & DOHME LLC
  Company Number: None

PATIENT
  Age: 73 Year
  Sex: Female
  Weight: 75 kg

DRUGS (16)
  1. KEYTRUDA [Suspect]
     Active Substance: PEMBROLIZUMAB
     Indication: Lung adenocarcinoma
     Dosage: 400MG EVERY 6 WEEKS
     Route: 042
     Dates: start: 20230309
  2. KEYTRUDA [Suspect]
     Active Substance: PEMBROLIZUMAB
     Indication: Lung adenocarcinoma
     Dosage: 400MG EVERY 6 WEEKS
     Route: 042
     Dates: start: 20230330
  3. KEYTRUDA [Suspect]
     Active Substance: PEMBROLIZUMAB
     Indication: Lung adenocarcinoma
     Dosage: 400MG EVERY 6 WEEKS
     Route: 042
     Dates: start: 20230421
  4. KEYTRUDA [Suspect]
     Active Substance: PEMBROLIZUMAB
     Indication: Lung adenocarcinoma
     Dosage: 400MG EVERY 6 WEEKS
     Route: 042
     Dates: start: 20230516
  5. KEYTRUDA [Suspect]
     Active Substance: PEMBROLIZUMAB
     Indication: Lung adenocarcinoma
     Dosage: 400MG EVERY 6 WEEKS
     Route: 042
     Dates: start: 20230607
  6. FOLSYRA EQL PHARMA [Concomitant]
     Dosage: DOSE DESCRIPTION : 1X1
     Route: 048
     Dates: start: 20230224
  7. METOPROLOL SUCCINATE [Concomitant]
     Active Substance: METOPROLOL SUCCINATE
     Dosage: DOSE DESCRIPTION : 1X1
     Route: 048
     Dates: start: 20170830
  8. BEVIPLEX COMP [Concomitant]
     Route: 048
     Dates: start: 20160414
  9. CLOPIDOGREL [Concomitant]
     Active Substance: CLOPIDOGREL BISULFATE
     Dosage: DOSE DESCRIPTION : 1X1
     Route: 048
     Dates: start: 20141121
  10. Calcipos-D forte [Concomitant]
     Route: 048
     Dates: start: 20180430, end: 20230607
  11. ROSUVASTATIN CALCIUM [Concomitant]
     Active Substance: ROSUVASTATIN CALCIUM
     Dosage: DOSE DESCRIPTION : 1X1
     Dates: start: 20190821
  12. KEPPRA [Concomitant]
     Active Substance: LEVETIRACETAM
     Dosage: 1X2
     Route: 048
     Dates: start: 20151026
  13. Alendronate Abacus Medicine Weekly tablet [Concomitant]
     Dosage: 1/WEEK
     Route: 048
     Dates: start: 20121029
  14. AMLODIPINE [Concomitant]
     Active Substance: AMLODIPINE BESYLATE
     Dosage: DOSE DESCRIPTION : 1X1
     Route: 048
     Dates: start: 20201006
  15. IMOVANE [Concomitant]
     Active Substance: ZOPICLONE
     Route: 048
     Dates: start: 20230301
  16. PRIMPERAN [Concomitant]
     Active Substance: METOCLOPRAMIDE HYDROCHLORIDE
     Route: 048
     Dates: start: 20230301

REACTIONS (1)
  - Myocarditis [Fatal]

NARRATIVE: CASE EVENT DATE: 20230611
